FAERS Safety Report 10162908 (Version 2)
Quarter: 2014Q2

REPORT INFORMATION
  Report Type: Report from Study
  Country: AU (occurrence: AU)
  Receive Date: 20140509
  Receipt Date: 20140509
  Transmission Date: 20141212
  Serious: Yes (Other)
  Sender: FDA-Public Use
  Company Number: AU-JNJFOC-20140504494

PATIENT
  Sex: Female

DRUGS (2)
  1. REMICADE [Suspect]
     Indication: CROHN^S DISEASE
     Dosage: PARTNER^S DOSING
     Route: 050
     Dates: start: 20080424
  2. REMICADE [Suspect]
     Indication: CROHN^S DISEASE
     Dosage: PARTNER^S DOSING
     Route: 050
     Dates: start: 20140113

REACTIONS (2)
  - Abortion spontaneous [Not Recovered/Not Resolved]
  - Exposure via father [Recovered/Resolved]
